FAERS Safety Report 7373325-8 (Version None)
Quarter: 2011Q1

REPORT INFORMATION
  Report Type: 
  Country: None (occurrence: None)
  Receive Date: 20110324
  Receipt Date: 20110318
  Transmission Date: 20110831
  Serious: Yes (Hospitalization, Other)
  Sender: FDA-Public Use
  Company Number: US-ABBOTT-10P-163-0660099-00

PATIENT
  Sex: Female
  Weight: 129.84 kg

DRUGS (8)
  1. IBUPROFEN [Suspect]
     Indication: PRODUCT USED FOR UNKNOWN INDICATION
  2. DARVOCET-N 100 [Concomitant]
     Indication: PRODUCT USED FOR UNKNOWN INDICATION
  3. METOPROLOL [Concomitant]
     Indication: HEART RATE IRREGULAR
  4. HUMIRA [Suspect]
     Indication: RHEUMATOID ARTHRITIS
     Dates: start: 20060701, end: 20100611
  5. HUMIRA [Suspect]
     Route: 058
     Dates: end: 20100901
  6. SYNTHROID [Concomitant]
     Indication: PRODUCT USED FOR UNKNOWN INDICATION
  7. METHOTREXATE [Concomitant]
     Indication: RHEUMATOID ARTHRITIS
  8. HUMIRA [Suspect]
     Dates: start: 20110301

REACTIONS (8)
  - ATRIAL FIBRILLATION [None]
  - FATIGUE [None]
  - CHEST PAIN [None]
  - ARTHRALGIA [None]
  - MAMMOGRAM ABNORMAL [None]
  - HEART RATE INCREASED [None]
  - JOINT SWELLING [None]
  - BIOPSY BREAST ABNORMAL [None]
